FAERS Safety Report 18239159 (Version 1)
Quarter: 2020Q3

REPORT INFORMATION
  Report Type: Other
  Country: US (occurrence: US)
  Receive Date: 20200907
  Receipt Date: 20200907
  Transmission Date: 20201103
  Serious: Yes (Other)
  Sender: FDA-Public Use
  Company Number: US-LUPIN PHARMACEUTICALS INC.-2019-05945

PATIENT

DRUGS (1)
  1. RANOLAZINE EXTENDED RELEASE TABLET 500 MG [Suspect]
     Active Substance: RANOLAZINE
     Indication: ANGINA PECTORIS
     Dosage: UNK
     Route: 065

REACTIONS (3)
  - Angina pectoris [Recovered/Resolved]
  - Drug ineffective [Unknown]
  - Product substitution issue [Unknown]
